FAERS Safety Report 16327864 (Version 2)
Quarter: 2019Q3

REPORT INFORMATION
  Report Type: Report from Study
  Country: None (occurrence: US)
  Receive Date: 20190518
  Receipt Date: 20190710
  Transmission Date: 20191004
  Serious: Yes (Other)
  Sender: FDA-Public Use
  Company Number: US-ABBVIE-18K-163-2552187-00

PATIENT
  Age: 42 Year
  Sex: Male

DRUGS (1)
  1. HUMIRA [Suspect]
     Active Substance: ADALIMUMAB
     Indication: PSORIASIS
     Route: 058

REACTIONS (4)
  - Herpes virus infection [Recovering/Resolving]
  - Diabetes mellitus [Unknown]
  - Psoriasis [Unknown]
  - Autoimmune hepatitis [Unknown]

NARRATIVE: CASE EVENT DATE: 2018
